FAERS Safety Report 4368894-6 (Version None)
Quarter: 2004Q2

REPORT INFORMATION
  Report Type: 
  Country: None (occurrence: None)
  Receive Date: 20040525
  Receipt Date: 20040510
  Transmission Date: 20050107
  Serious: Yes (Hospitalization)
  Sender: FDA-Public Use
  Company Number: 197889

PATIENT
  Age: 58 Year
  Sex: Female
  Weight: 83.9154 kg

DRUGS (10)
  1. AVONEX [Suspect]
     Indication: MULTIPLE SCLEROSIS
     Dosage: 30 MCG QW IM
     Route: 030
     Dates: start: 20010301, end: 20030801
  2. AVONEX [Suspect]
     Indication: MULTIPLE SCLEROSIS
     Dosage: 30 MCG QW IM
     Route: 030
     Dates: start: 20030801
  3. NORVASC [Concomitant]
  4. BETA BLOCKER (NOS) [Concomitant]
  5. LISINOPRIL [Concomitant]
  6. DIAZEPAM [Concomitant]
  7. SYNTHROID [Concomitant]
  8. METFORMIN [Concomitant]
  9. CIMETIDINE [Concomitant]
  10. ZOLOFT [Concomitant]

REACTIONS (6)
  - ACCIDENT [None]
  - BURNS SECOND DEGREE [None]
  - BURNS THIRD DEGREE [None]
  - HEART RATE DECREASED [None]
  - MUSCLE SPASMS [None]
  - SKIN GRAFT [None]
